FAERS Safety Report 5045825-7 (Version None)
Quarter: 2006Q2

REPORT INFORMATION
  Report Type: 
  Country: None (occurrence: None)
  Receive Date: 20060601
  Receipt Date: 20060421
  Transmission Date: 20061013
  Serious: No
  Sender: FDA-Public Use
  Company Number: 2006-BP-04230BP

PATIENT
  Age: 67 Year
  Sex: Male

DRUGS (5)
  1. SPIRIVA [Suspect]
     Indication: CHRONIC OBSTRUCTIVE PULMONARY DISEASE
     Dosage: 18 MCG (18 MCG, 1 IN 1 D), IH
     Route: 055
     Dates: start: 20060301
  2. SPIRIVA [Suspect]
  3. LIPITOR [Concomitant]
  4. GLYBURIDE [Concomitant]
  5. WARFARIN SODIUM [Concomitant]

REACTIONS (2)
  - AGEUSIA [None]
  - DRUG INEFFECTIVE [None]
